FAERS Safety Report 7951370-9 (Version None)
Quarter: 2011Q4

REPORT INFORMATION
  Report Type: 
  Country: None (occurrence: None)
  Receive Date: 20111129
  Receipt Date: 20111116
  Transmission Date: 20120403
  Serious: Yes (Other)
  Sender: FDA-Public Use
  Company Number: 1000025428

PATIENT
  Age: 50 Year
  Sex: Female

DRUGS (4)
  1. ESCITALOPRAM [Suspect]
     Indication: DEPRESSION
     Dosage: 20 MG (20 MG, 1 IN 1 D), ORAL
     Route: 048
     Dates: start: 20100929, end: 20110807
  2. MIRTAZAPINE [Concomitant]
  3. QUILONUM RETARD (LITHIUM CARBONATE) (LITHIUM CARBONATE) [Concomitant]
  4. ESCITALOPRAM OXALATE [Suspect]
     Indication: DEPRESSION
     Dosage: 5 M (15 MG, 1 IN 1 D), ORAL
     Route: 048
     Dates: start: 20110101

REACTIONS (9)
  - TREMOR [None]
  - NERVOUSNESS [None]
  - MALAISE [None]
  - TACHYCARDIA [None]
  - MYALGIA [None]
  - AUTOIMMUNE THYROIDITIS [None]
  - SEROTONIN SYNDROME [None]
  - TERMINAL INSOMNIA [None]
  - RESTLESSNESS [None]
